FAERS Safety Report 12637708 (Version 1)
Quarter: 2016Q3

REPORT INFORMATION
  Report Type: Spontaneous
  Country: US (occurrence: US)
  Receive Date: 20160809
  Receipt Date: 20160809
  Transmission Date: 20161109
  Serious: No
  Sender: FDA-Public Use
  Company Number: US-ABBVIE-16P-163-1544257-00

PATIENT
  Sex: Male
  Weight: 80 kg

DRUGS (6)
  1. VALPROIC ACID. [Suspect]
     Active Substance: VALPROIC ACID
     Indication: MOOD SWINGS
     Dosage: ONCE IN MORNING AND ONE AT NIGHT
     Route: 048
  2. DEPAKOTE [Suspect]
     Active Substance: DIVALPROEX SODIUM
     Indication: MUSCLE RELAXANT THERAPY
     Dosage: 6 CAPSULES MORNING, 6 CAPSULES NIGHT
     Route: 048
     Dates: start: 2004
  3. GEODON [Suspect]
     Active Substance: ZIPRASIDONE HYDROCHLORIDE\ZIPRASIDONE MESYLATE
     Indication: MUSCLE RELAXANT THERAPY
     Dosage: SIX EVERY MORNING AND SIX EVERY NIGHT
     Route: 048
     Dates: start: 1997, end: 2015
  4. ATENOLOL. [Concomitant]
     Active Substance: ATENOLOL
     Indication: HYPERTENSION
     Dosage: ONE IN MORNING, ONE AT NIGHT
     Route: 048
  5. RISPERDAL [Concomitant]
     Active Substance: RISPERIDONE
     Indication: MUSCLE RELAXANT THERAPY
     Route: 030
     Dates: start: 2004, end: 201601
  6. OLANZAPINE. [Concomitant]
     Active Substance: OLANZAPINE
     Indication: PRODUCT USED FOR UNKNOWN INDICATION

REACTIONS (4)
  - Erectile dysfunction [Recovered/Resolved]
  - Incorrect dose administered [Unknown]
  - Weight increased [Recovering/Resolving]
  - Sluggishness [Unknown]

NARRATIVE: CASE EVENT DATE: 2007
